FAERS Safety Report 5338715-3 (Version None)
Quarter: 2007Q2

REPORT INFORMATION
  Report Type: 
  Country: None (occurrence: None)
  Receive Date: 20070530
  Receipt Date: 20070524
  Transmission Date: 20071010
  Serious: Yes (Hospitalization)
  Sender: FDA-Public Use
  Company Number: B0470392A

PATIENT
  Age: 64 Year
  Sex: Female
  Weight: 45 kg

DRUGS (2)
  1. LAPATINIB [Suspect]
     Dosage: 1250MG PER DAY
     Route: 048
     Dates: start: 20070404
  2. CAPECITABINE [Suspect]
     Dosage: 2750MG PER DAY
     Route: 048
     Dates: start: 20070404

REACTIONS (4)
  - DUODENAL STENOSIS [None]
  - HYPERBILIRUBINAEMIA [None]
  - JAUNDICE [None]
  - NAUSEA [None]
